FAERS Safety Report 16835231 (Version 1)
Quarter: 2019Q3

REPORT INFORMATION
  Report Type: Not Available
  Country: US (occurrence: US)
  Receive Date: 20190920
  Receipt Date: 20190920
  Transmission Date: 20191005
  Serious: Yes (Hospitalization, Other)
  Sender: FDA-Public Use
  Company Number: US-SERVIER-S19009789

PATIENT

DRUGS (6)
  1. ONCASPAR [Suspect]
     Active Substance: PEGASPARGASE
     Indication: B-CELL TYPE ACUTE LEUKAEMIA
     Dosage: UNK, OVER 1-2 HOURS ON DAY 4
     Route: 042
  2. TN UNSPECIFIED [CYTARABINE] [Suspect]
     Active Substance: CYTARABINE
     Indication: B-CELL TYPE ACUTE LEUKAEMIA
     Dosage: UNK, ON D1
     Route: 037
  3. TN UNSPECIFIED [METHOTREXATE SODIUM] [Suspect]
     Active Substance: METHOTREXATE SODIUM
     Dosage: 2MG/M2 ON DAYS 8,29
     Route: 037
  4. TN UNSPECIFIED [DEXAMETHASONE SODIUM SUCCINATE] [Suspect]
     Active Substance: DEXAMETHASONE SODIUM SUCCINATE
     Indication: B-CELL TYPE ACUTE LEUKAEMIA
     Dosage: UNK, BID,ON DAYS 1-28
     Route: 042
  5. TN UNSPECIFIED [METHOTREXATE SODIUM] [Suspect]
     Active Substance: METHOTREXATE SODIUM
     Indication: B-CELL TYPE ACUTE LEUKAEMIA
     Dosage: 5 MG/M2
     Route: 037
  6. TN UNSPECIFIED [VINCRISTINE SULFATE] [Suspect]
     Active Substance: VINCRISTINE SULFATE
     Indication: B-CELL TYPE ACUTE LEUKAEMIA
     Dosage: UNK, ON DAYS 1, 8, 15, 22
     Route: 042

REACTIONS (5)
  - Mucormycosis [Recovering/Resolving]
  - Pancreatitis [Recovered/Resolved]
  - Hypertension [Unknown]
  - Gastrointestinal haemorrhage [Recovered/Resolved]
  - Seizure [Recovered/Resolved]

NARRATIVE: CASE EVENT DATE: 2019
